FAERS Safety Report 9267235 (Version 1)
Quarter: 2013Q2

REPORT INFORMATION
  Report Type: Report from Study
  Country: CA (occurrence: CA)
  Receive Date: 20130502
  Receipt Date: 20130502
  Transmission Date: 20140414
  Serious: Yes (Other)
  Sender: FDA-Public Use
  Company Number: PHHY2013CA043041

PATIENT
  Sex: Female

DRUGS (6)
  1. CLOZARIL [Suspect]
     Indication: SCHIZOPHRENIA
     Dosage: 350 MG, QD
     Route: 048
     Dates: start: 20111011
  2. LITHIUM [Concomitant]
     Dosage: 300 MG, BID
  3. LATUDA [Concomitant]
     Dosage: 80 MG, (AT AM)
     Route: 048
  4. RIVOTRIL [Concomitant]
     Dosage: 0.25 MG, TID
  5. RESTORIL [Concomitant]
     Dosage: 30 MG, (AT HS)
  6. ATROPINE [Concomitant]
     Dosage: UNK UKN, UNK

REACTIONS (2)
  - Idiopathic thrombocytopenic purpura [Unknown]
  - Platelet count decreased [Unknown]
